FAERS Safety Report 20861592 (Version 1)
Quarter: 2022Q2

REPORT INFORMATION
  Report Type: Spontaneous
  Country: US (occurrence: US)
  Receive Date: 20220523
  Receipt Date: 20220523
  Transmission Date: 20220721
  Serious: Yes (Hospitalization)
  Sender: FDA-Public Use
  Company Number: US-MYLANLABS-2022M1038499

PATIENT
  Age: 50 Year
  Sex: Male

DRUGS (4)
  1. LORAZEPAM [Suspect]
     Active Substance: LORAZEPAM
     Indication: Alcohol withdrawal syndrome
     Dosage: 1 MILLIGRAM, TOTAL (ONE-TIME LORAZEPAM 1 MG INTRAVENOUS INJECTION)
     Route: 042
  2. CHLORDIAZEPOXIDE [Suspect]
     Active Substance: CHLORDIAZEPOXIDE
     Indication: Alcohol withdrawal syndrome
     Dosage: 50 MILLIGRAM
     Route: 048
  3. DILTIAZEM [Concomitant]
     Active Substance: DILTIAZEM
     Indication: Atrial fibrillation
     Dosage: 5 MILLIGRAM, QH, CONTINUOUS INFUSION
  4. DILTIAZEM [Concomitant]
     Active Substance: DILTIAZEM
     Dosage: 15 MILLIGRAM, QH, CONTINUOUS INFUSION=

REACTIONS (2)
  - Paradoxical drug reaction [Recovered/Resolved]
  - Off label use [Unknown]
